FAERS Safety Report 17514907 (Version 1)
Quarter: 2020Q1

REPORT INFORMATION
  Report Type: Spontaneous
  Country: US (occurrence: US)
  Receive Date: 20200309
  Receipt Date: 20200309
  Transmission Date: 20200409
  Serious: Yes (Other)
  Sender: FDA-Public Use
  Company Number: US-SA-2020SA057109

PATIENT

DRUGS (2)
  1. ZANTAC 150 (RANITIDINE HYDROCHLORIDE) [Suspect]
     Active Substance: RANITIDINE HYDROCHLORIDE
     Dosage: UNK UNK, QD
     Route: 065
     Dates: start: 2014
  2. RANITIDINE. [Suspect]
     Active Substance: RANITIDINE
     Dosage: UNK
     Route: 065
     Dates: start: 2018, end: 201910

REACTIONS (5)
  - Pain [Not Recovered/Not Resolved]
  - Anxiety [Unknown]
  - Gastric cancer [Unknown]
  - Impaired quality of life [Unknown]
  - Hepatic cancer stage IV [Unknown]
